FAERS Safety Report 6372403-X (Version None)
Quarter: 2009Q3

REPORT INFORMATION
  Report Type: 
  Country: None (occurrence: None)
  Receive Date: 20090924
  Receipt Date: 20081007
  Transmission Date: 20100115
  Serious: No
  Sender: FDA-Public Use
  Company Number: US-ASTRAZENECA-2008UW21844

PATIENT
  Age: 47 Year
  Sex: Female
  Weight: 97.1 kg

DRUGS (14)
  1. SEROQUEL [Suspect]
     Indication: AFFECTIVE DISORDER
     Route: 048
     Dates: start: 20020101
  2. SEROQUEL [Suspect]
     Indication: THINKING ABNORMAL
     Route: 048
     Dates: start: 20020101
  3. CLONOZIPAN [Concomitant]
  4. LAMICTAL [Concomitant]
  5. GEODON [Concomitant]
     Dates: start: 20080901
  6. LOVOXAL [Concomitant]
  7. LOPID [Concomitant]
  8. LIPITOR [Concomitant]
  9. NEXIUM [Concomitant]
  10. VALTREX [Concomitant]
  11. XALATAN [Concomitant]
  12. CITRUCEL [Concomitant]
  13. ASCORBIC ACID [Concomitant]
  14. CELEXA [Concomitant]
     Dates: end: 20080919

REACTIONS (8)
  - ANXIETY [None]
  - APHASIA [None]
  - DYSGRAPHIA [None]
  - HYPOAESTHESIA [None]
  - MEMORY IMPAIRMENT [None]
  - PARANOIA [None]
  - SLEEP APNOEA SYNDROME [None]
  - THINKING ABNORMAL [None]
